FAERS Safety Report 7216465-6 (Version None)
Quarter: 2011Q1

REPORT INFORMATION
  Report Type: 
  Country: None (occurrence: None)
  Receive Date: 20110107
  Receipt Date: 20110104
  Transmission Date: 20110831
  Serious: Yes (Death)
  Sender: FDA-Public Use
  Company Number: US-AMGEN-QUU388048

PATIENT

DRUGS (3)
  1. NPLATE [Suspect]
     Indication: IDIOPATHIC THROMBOCYTOPENIC PURPURA
     Dosage: 2 A?G/KG, UNK
     Dates: start: 20090120, end: 20090127
  2. CORTICOSTEROID NOS [Concomitant]
  3. NPLATE [Suspect]
     Dosage: 2 A?G/KG, UNK
     Dates: start: 20090127

REACTIONS (1)
  - RENAL FAILURE [None]
